FAERS Safety Report 16103125 (Version 2)
Quarter: 2019Q2

REPORT INFORMATION
  Report Type: Report from Study
  Country: CO (occurrence: CO)
  Receive Date: 20190322
  Receipt Date: 20190415
  Transmission Date: 20190711
  Serious: Yes (Death, Life-Threatening, Hospitalization, Other)
  Sender: FDA-Public Use
  Company Number: CO-AMGEN-COLSL2019009336

PATIENT
  Age: 71 Year
  Sex: Male

DRUGS (3)
  1. DEXAMETHASONE. [Suspect]
     Active Substance: DEXAMETHASONE
     Indication: PLASMA CELL MYELOMA
     Dosage: UNK, ON DAY 21
     Route: 065
  2. KYPROLIS [Suspect]
     Active Substance: CARFILZOMIB
     Dosage: 20 MILLIGRAM, ON DAY 1, 8, 15
     Route: 042
     Dates: start: 20190125, end: 20190228
  3. KYPROLIS [Suspect]
     Active Substance: CARFILZOMIB
     Indication: PLASMA CELL MYELOMA
     Dosage: 45 MILLIGRAM, UNK (OTHER)
     Route: 042
     Dates: start: 20180214

REACTIONS (3)
  - Off label use [Unknown]
  - Pneumonia [Fatal]
  - Urinary tract infection [Not Recovered/Not Resolved]

NARRATIVE: CASE EVENT DATE: 20190110
